FAERS Safety Report 8622901-0 (Version None)
Quarter: 2012Q3

REPORT INFORMATION
  Report Type: 
  Country: None (occurrence: None)
  Receive Date: 20120827
  Receipt Date: 20120821
  Transmission Date: 20120928
  Serious: Yes (Death, Hospitalization)
  Sender: FDA-Public Use
  Company Number: PHHY2012BR020968

PATIENT
  Sex: Male

DRUGS (7)
  1. CAPTOPRIL [Concomitant]
     Indication: BLOOD PRESSURE
     Dosage: 1 TABLET IN THE MORNING AND 1 TABLET AT NIGHT
     Route: 048
  2. ASPIRIN [Concomitant]
     Dosage: 1 TABLET DAILY
     Route: 048
  3. OMEPRAZOLE [Concomitant]
     Indication: GASTRIC DISORDER
     Dosage: 1 TABLET IN THE MORNING
     Route: 048
  4. STALEVO 100 [Suspect]
     Dosage: 200/100/25 MG, ONE TABLET THRICE DAILY
     Route: 048
  5. STALEVO 100 [Suspect]
     Indication: PARKINSON'S DISEASE
     Dosage: 200/50/12.5, 1 TABLET IN MORNING, 1 TABLET IN AFTERNOON,1 TABLET AT NIGHT
     Route: 048
  6. SIMVASTATIN [Concomitant]
     Indication: BLOOD CHOLESTEROL
     Dosage: 1 TABLET AT NIGHT
     Route: 048
  7. STALEVO 100 [Suspect]
     Dosage: 200/50/12.5MG, ONE TABLET THRICE DAILY
     Route: 048

REACTIONS (19)
  - CARDIAC OUTPUT DECREASED [None]
  - AGITATION [None]
  - INCREASED UPPER AIRWAY SECRETION [None]
  - CARDIOMEGALY [None]
  - FOOD AVERSION [None]
  - HYPOKINESIA [None]
  - IMPAIRED REASONING [None]
  - WEIGHT DECREASED [None]
  - KIDNEY INFECTION [None]
  - RESTLESSNESS [None]
  - COUGH [None]
  - CARDIAC DISORDER [None]
  - PULMONARY OEDEMA [None]
  - PNEUMONIA [None]
  - LUNG INFECTION [None]
  - CARDIAC FAILURE [None]
  - RENAL FAILURE [None]
  - POOR QUALITY SLEEP [None]
  - NERVOUSNESS [None]
